FAERS Safety Report 5873358-4 (Version None)
Quarter: 2008Q3

REPORT INFORMATION
  Report Type: 
  Country: None (occurrence: None)
  Receive Date: 20080908
  Receipt Date: 20080828
  Transmission Date: 20090109
  Serious: Yes (Hospitalization)
  Sender: FDA-Public Use
  Company Number: JP-NOVOPROD-278069

PATIENT
  Age: 53 Year
  Sex: Female
  Weight: 34 kg

DRUGS (14)
  1. NOVORAPID 30 MIX CHU FLEXPEN [Suspect]
     Indication: TYPE 1 DIABETES MELLITUS
     Dosage: 14 IU, QD
     Route: 058
     Dates: start: 20070701, end: 20070820
  2. LEVEMIR [Suspect]
     Indication: TYPE 1 DIABETES MELLITUS
     Dosage: 6 IU, QD
     Route: 058
     Dates: start: 20080610, end: 20080617
  3. NOVOLIN R [Suspect]
     Indication: TYPE 1 DIABETES MELLITUS
     Dosage: 3 IU, QD
     Route: 058
     Dates: start: 20080730, end: 20080730
  4. NOVOLIN N [Suspect]
     Indication: TYPE 1 DIABETES MELLITUS
     Dosage: 2 IU, QD
     Route: 058
     Dates: start: 20080730, end: 20080730
  5. HUMALOG [Concomitant]
     Indication: TYPE 1 DIABETES MELLITUS
     Dosage: 18 IU, QD
     Route: 058
     Dates: start: 20080609, end: 20080701
  6. HUMALOG [Concomitant]
     Indication: TYPE 1 DIABETES MELLITUS
     Dates: start: 20080618, end: 20080619
  7. LOXONIN                            /00890702/ [Concomitant]
     Dosage: 180 MG, UNK
     Route: 048
     Dates: start: 20070928
  8. TERNELIN [Concomitant]
     Dosage: 3 MG, QD
     Dates: start: 20070928
  9. SELBEX [Concomitant]
     Dosage: 150 MG, QD
     Route: 048
     Dates: start: 20070928
  10. ZYLORIC                            /00003301/ [Concomitant]
     Dosage: 100 MG, QD
     Route: 048
     Dates: start: 20070316, end: 20080612
  11. MAGNESIUM OXIDE [Concomitant]
     Dosage: 1 G, QD
     Route: 048
     Dates: start: 20070316
  12. PRAVASTATIN [Concomitant]
     Dosage: 10 MG, UNK
     Route: 048
     Dates: start: 20070316, end: 20080612
  13. ALESION [Concomitant]
     Dosage: 20 MG, QD
     Route: 048
     Dates: start: 20080715, end: 20080817
  14. ZYRTEC [Concomitant]
     Dosage: 10 MG, QD
     Route: 048
     Dates: start: 20080818

REACTIONS (4)
  - ANTI-INSULIN ANTIBODY [None]
  - DIABETES MELLITUS INADEQUATE CONTROL [None]
  - HYPOGLYCAEMIA [None]
  - INJECTION SITE REACTION [None]
